FAERS Safety Report 4432854-7 (Version None)
Quarter: 2004Q3

REPORT INFORMATION
  Report Type: 
  Country: None (occurrence: None)
  Receive Date: 20040823
  Receipt Date: 20040806
  Transmission Date: 20050211
  Serious: Yes (Death)
  Sender: FDA-Public Use
  Company Number: 208506

PATIENT
  Age: 41 Year
  Sex: Female
  Weight: 51 kg

DRUGS (2)
  1. HERCEPTIN [Suspect]
     Indication: BREAST CANCER
     Dosage: 100 MG, INTRAVENOUS
     Route: 042
     Dates: end: 20040723
  2. TAXOL [Suspect]
     Indication: BREAST CANCER
     Dosage: 130 MG, INTRAVENOUS
     Route: 042
     Dates: end: 20040723

REACTIONS (8)
  - ACTIVATED PARTIAL THROMBOPLASTIN TIME PROLONGED [None]
  - BLOOD FIBRINOGEN DECREASED [None]
  - CARBOHYDRATE ANTIGEN 125 INCREASED [None]
  - DISSEMINATED INTRAVASCULAR COAGULATION [None]
  - FIBRIN DEGRADATION PRODUCTS INCREASED [None]
  - HAEMATOMA [None]
  - LEUKOPENIA [None]
  - PROTHROMBIN TIME ABNORMAL [None]
